FAERS Safety Report 4530928-3 (Version None)
Quarter: 2004Q4

REPORT INFORMATION
  Report Type: 
  Country: None (occurrence: None)
  Receive Date: 20041213
  Receipt Date: 20041201
  Transmission Date: 20050328
  Serious: Yes (Other)
  Sender: FDA-Public Use
  Company Number: 200410341BBE

PATIENT
  Age: 14 Month
  Sex: Female

DRUGS (34)
  1. GAMUNEX [Suspect]
     Indication: HYPOGAMMAGLOBULINAEMIA
     Dosage: 5 G, ONCE, INTRAVENOUS
     Route: 042
     Dates: start: 20040812
  2. GAMUNEX [Suspect]
     Indication: HYPOGAMMAGLOBULINAEMIA
     Dosage: 2.5 G, ONCE, INTRAVENOUS
     Route: 042
     Dates: start: 20040904
  3. GAMUNEX [Suspect]
     Indication: HYPOGAMMAGLOBULINAEMIA
     Dosage: 2.5 G, ONCE, INTRAVENOUS
     Route: 042
     Dates: start: 20040925
  4. ALBUTEROL [Concomitant]
  5. CHLROROTHIAZIDE [Concomitant]
  6. PHENOBARBITAL TAB [Concomitant]
  7. VANCOMYCIN [Concomitant]
  8. TOBRAMYCIN [Concomitant]
  9. ZOSYN [Concomitant]
  10. FLUCONAZOLE [Concomitant]
  11. FUROSEMIDE [Concomitant]
  12. DOPAMINE HCL [Concomitant]
  13. MILRINONE [Concomitant]
  14. FENTANYL [Concomitant]
  15. CALCIUM CHLORIDE [Concomitant]
  16. LORAZEPAM [Concomitant]
  17. MORPHINE [Concomitant]
  18. VECURONIUM [Concomitant]
  19. POTASSIUM CHLORIDE [Concomitant]
  20. CHLORAL HYDRATE [Concomitant]
  21. ACETAMINOPHEN [Concomitant]
  22. VITAMIN K [Concomitant]
  23. TPN [Concomitant]
  24. BUDESONIDE [Concomitant]
  25. ALBUMIN HUMAN ^BERNA^ [Concomitant]
  26. CALCIUM GLUBIONATE [Concomitant]
  27. DIGOXIN [Concomitant]
  28. LOPERAMIDE HCL [Concomitant]
  29. METHADONE HCL [Concomitant]
  30. BACTRIM [Concomitant]
  31. DOBUTAMINE [Concomitant]
  32. NYSTATIN [Concomitant]
  33. POLYCITRA K ^BAKER NORTON^ [Concomitant]
  34. CARIMUNE [Concomitant]

REACTIONS (1)
  - PULMONARY HAEMORRHAGE [None]
